FAERS Safety Report 23410446 (Version 5)
Quarter: 2024Q1

REPORT INFORMATION
  Report Type: Spontaneous
  Country: US (occurrence: US)
  Receive Date: 20240117
  Receipt Date: 20240325
  Transmission Date: 20240410
  Serious: No
  Sender: FDA-Public Use
  Company Number: US-PFIZER INC-PV202300141036

PATIENT
  Age: 78 Year
  Sex: Male

DRUGS (3)
  1. INLYTA [Suspect]
     Active Substance: AXITINIB
     Dosage: 5 MG, 2X/DAY, [DIRECTIONS/ DOSING INSTRUCTIONS: TAKE 5MG TWICE DAILY]
     Route: 048
  2. INLYTA [Suspect]
     Active Substance: AXITINIB
     Dosage: 100 MG, 2X/DAY (TAKE 1 TABLET BY MOUTH EVERY 12 HOUR)
     Route: 048
  3. INLYTA [Suspect]
     Active Substance: AXITINIB
     Dosage: 5 MG

REACTIONS (3)
  - Heart rate increased [Unknown]
  - Product prescribing error [Unknown]
  - Product dispensing error [Unknown]

NARRATIVE: CASE EVENT DATE: 20240111
